FAERS Safety Report 11092899 (Version 1)
Quarter: 2015Q2

REPORT INFORMATION
  Report Type: Spontaneous
  Country: FR (occurrence: FR)
  Receive Date: 20150506
  Receipt Date: 20150506
  Transmission Date: 20150821
  Serious: Yes (Other)
  Sender: FDA-Public Use
  Company Number: FR-CELGENE-FRA-2015045907

PATIENT

DRUGS (1)
  1. ROMIDEPSIN [Suspect]
     Active Substance: ROMIDEPSIN
     Indication: PERIPHERAL T-CELL LYMPHOMA UNSPECIFIED
     Dosage: 14 MILLIGRAM/SQ. METER
     Route: 041

REACTIONS (12)
  - Vomiting [Unknown]
  - Cellulitis [Unknown]
  - Peripheral T-cell lymphoma unspecified [Unknown]
  - Asthenia [Unknown]
  - Pneumonia [Unknown]
  - Electrocardiogram abnormal [Unknown]
  - Haematology test abnormal [Unknown]
  - Gastrointestinal disorder [Unknown]
  - Infection [Unknown]
  - Constipation [Unknown]
  - Deep vein thrombosis [Unknown]
  - Pyrexia [Unknown]
